FAERS Safety Report 18085971 (Version 1)
Quarter: 2020Q3

REPORT INFORMATION
  Report Type: Spontaneous
  Country: US (occurrence: US)
  Receive Date: 20200728
  Receipt Date: 20200728
  Transmission Date: 20201103
  Serious: No
  Sender: FDA-Public Use
  Company Number: None

PATIENT
  Sex: Female

DRUGS (3)
  1. PREGABALIN. [Concomitant]
     Active Substance: PREGABALIN
     Dates: start: 20200405, end: 20200611
  2. PREGABALIN. [Suspect]
     Active Substance: PREGABALIN
     Indication: NEURITIS
  3. PREGABALIN. [Suspect]
     Active Substance: PREGABALIN

REACTIONS (1)
  - Adverse drug reaction [None]
